FAERS Safety Report 8075805-9 (Version None)
Quarter: 2012Q1

REPORT INFORMATION
  Report Type: 
  Country: None (occurrence: None)
  Receive Date: 20120127
  Receipt Date: 20120117
  Transmission Date: 20120608
  Serious: Yes (Other)
  Sender: FDA-Public Use
  Company Number: US-ABBOTT-11P-163-0884562-00

PATIENT
  Sex: Male
  Weight: 77.18 kg

DRUGS (4)
  1. HUMIRA [Suspect]
     Indication: CROHN'S DISEASE
     Route: 058
     Dates: start: 20100101, end: 20100101
  2. FLAGYL [Suspect]
     Indication: PRODUCT USED FOR UNKNOWN INDICATION
  3. BROAD-SPECTRUM ANTIBIOTICS [Concomitant]
     Indication: PRODUCT USED FOR UNKNOWN INDICATION
  4. ULTRAM [Concomitant]
     Indication: PRODUCT USED FOR UNKNOWN INDICATION

REACTIONS (10)
  - CONSTIPATION [None]
  - HERNIA [None]
  - ENTEROCUTANEOUS FISTULA [None]
  - ABDOMINAL PAIN [None]
  - DYSURIA [None]
  - ABDOMINAL ABSCESS [None]
  - MALAISE [None]
  - BACK PAIN [None]
  - FISTULA DISCHARGE [None]
  - CROHN'S DISEASE [None]
